FAERS Safety Report 25577434 (Version 1)
Quarter: 2025Q3

REPORT INFORMATION
  Report Type: Spontaneous
  Country: US (occurrence: US)
  Receive Date: 20250718
  Receipt Date: 20250718
  Transmission Date: 20251021
  Serious: No
  Sender: NOVO NORDISK
  Company Number: US-NOVOPROD-1439559

PATIENT
  Sex: Female

DRUGS (1)
  1. RYBELSUS [Suspect]
     Active Substance: SEMAGLUTIDE
     Indication: Weight control
     Route: 048

REACTIONS (5)
  - Fatigue [Recovered/Resolved]
  - Gastrooesophageal reflux disease [Unknown]
  - Drug ineffective [Unknown]
  - Nausea [Not Recovered/Not Resolved]
  - Product use in unapproved indication [Unknown]
